FAERS Safety Report 24661953 (Version 1)
Quarter: 2024Q4

REPORT INFORMATION
  Report Type: Spontaneous
  Country: CA (occurrence: CA)
  Receive Date: 20241125
  Receipt Date: 20241125
  Transmission Date: 20250115
  Serious: Yes (Other)
  Sender: EISAI
  Company Number: CA-Eisai-EC-2024-179304

PATIENT
  Age: 70 Year
  Sex: Female

DRUGS (8)
  1. LENVATINIB [Suspect]
     Active Substance: LENVATINIB
     Indication: Papillary serous endometrial carcinoma
     Dosage: DOSE AND FREQUENCY UNKNOWN
     Route: 048
  2. CLOBETASOL [Suspect]
     Active Substance: CLOBETASOL
     Indication: Pemphigoid
     Dosage: DOSE AND FREQUENCY UNKNOWN
     Route: 065
  3. MYCOPHENOLATE MOFETIL [Suspect]
     Active Substance: MYCOPHENOLATE MOFETIL
     Indication: Pemphigoid
     Dosage: DOSE AND FREQUENCY UNKNOWN
     Route: 065
  4. PREDNISONE [Suspect]
     Active Substance: PREDNISONE
     Indication: Pemphigoid
     Dosage: DOSE AND FREQUENCY UNKNOWN
     Route: 065
  5. DOXYCYCLINE HYCLATE [Concomitant]
     Active Substance: DOXYCYCLINE HYCLATE
     Indication: Pemphigoid
     Dosage: DOSE AND FREQUENCY UNKNOWN
     Route: 065
  6. DUPILUMAB [Concomitant]
     Active Substance: DUPILUMAB
     Indication: Pemphigoid
     Dosage: DOSE AND FREQUENCY UNKNOWN
     Route: 065
  7. NICOTINAMIDE [Concomitant]
     Active Substance: NIACINAMIDE
     Indication: Pemphigoid
     Dosage: DOSE AND FREQUENCY UNKNOWN
     Route: 065
  8. PREDNISOLONE [Concomitant]
     Active Substance: PREDNISOLONE
     Indication: Pemphigoid
     Dosage: DOSE AND FREQUENCY UNKNOWN
     Route: 065

REACTIONS (1)
  - Drug ineffective [Unknown]
